FAERS Safety Report 4485827-2 (Version None)
Quarter: 2004Q3

REPORT INFORMATION
  Report Type: 
  Country: None (occurrence: None)
  Receive Date: 20040921
  Receipt Date: 20031030
  Transmission Date: 20050211
  Serious: Yes (Life-Threatening, Hospitalization)
  Sender: FDA-Public Use
  Company Number: 163-20785-03110033

PATIENT
  Age: 49 Year
  Sex: Male

DRUGS (5)
  1. THALOMID [Suspect]
     Indication: MULTIPLE MYELOMA
     Dosage: 400 MG, DAILY, ORAL
     Route: 048
     Dates: start: 20030825, end: 20030914
  2. VINCRISTINE [Suspect]
     Indication: MULTIPLE MYELOMA
     Dosage: 0.5 MG, DAILY, INTRAVENOUS
     Route: 042
     Dates: start: 20030825, end: 20030828
  3. ADRIAMYCIN PFS [Suspect]
     Indication: MULTIPLE MYELOMA
     Dosage: 19 MG, DAILY, INTRAVENOUS
     Route: 042
     Dates: start: 20030825, end: 20030828
  4. DEXAMETHASONE [Suspect]
     Indication: MULTIPLE MYELOMA
     Dosage: 40 MG, DAILY, ORAL
     Route: 048
     Dates: start: 20030825, end: 20030828
  5. LOVENOX [Concomitant]

REACTIONS (10)
  - ARTHRALGIA [None]
  - ATELECTASIS [None]
  - CHEST PAIN [None]
  - CONSTIPATION [None]
  - COUGH [None]
  - DEEP VEIN THROMBOSIS [None]
  - DYSPNOEA [None]
  - LIMB DISCOMFORT [None]
  - PULMONARY EMBOLISM [None]
  - PULMONARY INFARCTION [None]
